FAERS Safety Report 16862762 (Version 1)
Quarter: 2019Q3

REPORT INFORMATION
  Report Type: Spontaneous
  Country: FR (occurrence: FR)
  Receive Date: 20190927
  Receipt Date: 20190927
  Transmission Date: 20191005
  Serious: Yes (Other)
  Sender: FDA-Public Use
  Company Number: FR-TEVA-2019-FR-1115623

PATIENT
  Sex: Female

DRUGS (1)
  1. FURADANTINE 50 MG [Suspect]
     Active Substance: NITROFURANTOIN
     Route: 065

REACTIONS (2)
  - Drug hypersensitivity [Unknown]
  - Septic shock [Unknown]
